FAERS Safety Report 23955068 (Version 1)
Quarter: 2024Q2

REPORT INFORMATION
  Report Type: Spontaneous
  Country: US (occurrence: US)
  Receive Date: 20240610
  Receipt Date: 20240610
  Transmission Date: 20240716
  Serious: No
  Sender: FDA-Public Use
  Company Number: US-002147023-NVSC2024US119800

PATIENT
  Sex: Female

DRUGS (3)
  1. LETROZOLE [Suspect]
     Active Substance: LETROZOLE
     Indication: Product used for unknown indication
     Dosage: UNK
     Route: 065
     Dates: start: 2022
  2. KISQALI [Suspect]
     Active Substance: RIBOCICLIB
     Indication: Product used for unknown indication
     Dosage: UNK
     Route: 065
     Dates: start: 2022
  3. IBRANCE [Concomitant]
     Active Substance: PALBOCICLIB
     Indication: Breast cancer metastatic
     Dosage: 100 MG (100MG/1 DAY, 3 WEEKS/ 1 WEEK OFF)
     Route: 065
     Dates: start: 2022

REACTIONS (3)
  - Rash [Unknown]
  - Haemorrhage [Unknown]
  - Full blood count abnormal [Recovered/Resolved]

NARRATIVE: CASE EVENT DATE: 20220101
